FAERS Safety Report 4901774-3 (Version None)
Quarter: 2006Q1

REPORT INFORMATION
  Report Type: 
  Country: None (occurrence: None)
  Receive Date: 20060201
  Receipt Date: 20060201
  Transmission Date: 20060701
  Serious: Yes (Disabling, Other)
  Sender: FDA-Public Use
  Company Number: None

PATIENT
  Age: 38 Year
  Sex: Male
  Weight: 77.1115 kg

DRUGS (2)
  1. RHINOCORT [Suspect]
     Indication: HYPERSENSITIVITY
     Dosage: TWO SPRAYS IN EACH NOSTRIL DAILY NASAL
     Route: 045
     Dates: start: 20011105, end: 20011115
  2. RHINOCORT [Suspect]
     Indication: HYPERSENSITIVITY
     Dosage: TWO SPRAYS IN EACH NOSTRIL DAILY NASAL
     Route: 045
     Dates: start: 20020220, end: 20020222

REACTIONS (3)
  - PROSTATIC DISORDER [None]
  - SEXUAL DYSFUNCTION [None]
  - URINARY INCONTINENCE [None]
